FAERS Safety Report 16274077 (Version 1)
Quarter: 2019Q2

REPORT INFORMATION
  Report Type: Report from Study
  Country: US (occurrence: US)
  Receive Date: 20190506
  Receipt Date: 20190506
  Transmission Date: 20190711
  Serious: Yes (Other)
  Sender: FDA-Public Use
  Company Number: US-AUROBINDO-AUR-APL-2019-024474

PATIENT

DRUGS (1)
  1. LOPERAMIDE [Suspect]
     Active Substance: LOPERAMIDE
     Indication: PRODUCT USED FOR UNKNOWN INDICATION
     Dosage: UNK, GREATER THAN OR EQUAL TO } 200 MG
     Route: 065

REACTIONS (3)
  - Electrocardiogram QT prolonged [Unknown]
  - Intentional self-injury [Unknown]
  - Intentional overdose [Unknown]
